FAERS Safety Report 20714099 (Version 1)
Quarter: 2022Q2

REPORT INFORMATION
  Report Type: Spontaneous
  Country: CH (occurrence: CH)
  Receive Date: 20220415
  Receipt Date: 20220415
  Transmission Date: 20220720
  Serious: Yes (Other)
  Sender: FDA-Public Use
  Company Number: None

PATIENT
  Age: 64 Year
  Sex: Female

DRUGS (32)
  1. LYRICA [Suspect]
     Active Substance: PREGABALIN
     Dosage: 150 MG IN THE MORNING AND 100 MG IN THE EVENING
     Dates: start: 20180522
  2. QUETIAPINE [Suspect]
     Active Substance: QUETIAPINE
     Dosage: UNK
     Dates: start: 20180522, end: 20180817
  3. QUETIAPINE [Suspect]
     Active Substance: QUETIAPINE
     Dosage: 25 MG IN THE MORNING AND 50 MG IN THE EVENING + 25 MG MAX TWICE A DAY IN RESERVE
     Dates: start: 20180522
  4. QUETIAPINE [Suspect]
     Active Substance: QUETIAPINE
     Dosage: 125 MG, DAILY
     Dates: start: 20180817, end: 20200404
  5. QUETIAPINE [Suspect]
     Active Substance: QUETIAPINE
     Dosage: 100 MG, DAILY
     Dates: start: 20200404, end: 20210419
  6. QUETIAPINE [Suspect]
     Active Substance: QUETIAPINE
     Dosage: 75 MG, DAILY
     Dates: start: 20210419, end: 20210525
  7. QUETIAPINE [Suspect]
     Active Substance: QUETIAPINE
     Dosage: 50 MG, DAILY
     Dates: start: 20210525, end: 20211018
  8. QUETIAPINE [Suspect]
     Active Substance: QUETIAPINE
     Dosage: 25 MG IN THE MORNING AND 50 MG IN THE EVENING + 25 MG MAX 2X/DAY IN RESERVE
     Dates: start: 20211018
  9. QUETIAPINE [Suspect]
     Active Substance: QUETIAPINE
     Dosage: 75 MG, DAILY
     Dates: start: 20220202
  10. SIMPONI [Suspect]
     Active Substance: GOLIMUMAB
     Dosage: 50 MG, MONTHLY
     Dates: start: 20210818
  11. FLUOXETINE [Suspect]
     Active Substance: FLUOXETINE HYDROCHLORIDE
     Dosage: 10 MG, 1X/DAY
     Dates: start: 20180522
  12. DAFALGAN [Suspect]
     Active Substance: ACETAMINOPHEN
     Dosage: 1 G, 3X/DAY + MAX. 1X/DAY IN RESERVE
     Dates: start: 20180604
  13. METFORMIN [Suspect]
     Active Substance: METFORMIN HYDROCHLORIDE
     Dosage: 500 MG, 2X/DAY
     Dates: start: 20180522
  14. AGOMELATINE [Concomitant]
     Active Substance: AGOMELATINE
     Dosage: UNK
     Dates: start: 20210921
  15. ACEMETACIN [Concomitant]
     Active Substance: ACEMETACIN
     Dosage: UNK
     Dates: start: 20210428
  16. MORPHINE SULFATE [Concomitant]
     Active Substance: MORPHINE SULFATE
     Dosage: UNK
     Dates: start: 20180518
  17. MORPHINE SULFATE [Concomitant]
     Active Substance: MORPHINE SULFATE
     Dosage: UNK
     Dates: start: 20180522
  18. MORPHINE [Concomitant]
     Active Substance: MORPHINE
     Dosage: UNK UNK, AS NEEDED
     Dates: start: 20200605
  19. OMEPRAZOLE [Concomitant]
     Active Substance: OMEPRAZOLE
     Dosage: UNK
     Dates: start: 20190923
  20. CREON [Concomitant]
     Active Substance: PANCRELIPASE AMYLASE\PANCRELIPASE LIPASE\PANCRELIPASE PROTEASE
     Dosage: UNK
     Dates: start: 20200706
  21. IRON [Concomitant]
     Active Substance: IRON
     Dosage: UNK
     Dates: start: 20210527
  22. VITAMIN D3 [Concomitant]
     Active Substance: CHOLECALCIFEROL
     Dosage: UNK
     Dates: start: 20200907
  23. IALUGEN [Concomitant]
     Dosage: UNK
     Dates: start: 20210924
  24. BUDESONIDE\FORMOTEROL [Concomitant]
     Active Substance: BUDESONIDE\FORMOTEROL
     Dosage: UNK UNK, AS NEEDED
     Dates: start: 20210901
  25. BETADINE [Concomitant]
     Active Substance: POVIDONE-IODINE
     Dosage: UNK UNK, AS NEEDED
     Dates: start: 20211004
  26. BETADINE [Concomitant]
     Active Substance: POVIDONE-IODINE
     Dosage: RESERVE
     Dates: start: 20211029
  27. LIDOCAINE [Concomitant]
     Active Substance: LIDOCAINE
     Dosage: UNK UNK, AS NEEDED
     Dates: start: 20200525
  28. DICLOFENAC [Concomitant]
     Active Substance: DICLOFENAC
     Dosage: UNK UNK, AS NEEDED
     Dates: start: 20211010
  29. DICLOFENAC [Concomitant]
     Active Substance: DICLOFENAC
     Dosage: UNK
     Dates: start: 20211004
  30. ZINC OXIDE [Concomitant]
     Active Substance: ZINC OXIDE
     Dosage: UNK UNK, AS NEEDED
     Dates: start: 20200712
  31. RELAXANE [Concomitant]
     Dosage: UNK
     Dates: start: 20210503
  32. HERBALS [Concomitant]
     Active Substance: HERBALS
     Dosage: UNK
     Dates: start: 20200921

REACTIONS (3)
  - Pancytopenia [Not Recovered/Not Resolved]
  - Psychiatric decompensation [Unknown]
  - Glomerular filtration rate decreased [Unknown]

NARRATIVE: CASE EVENT DATE: 20201208
